FAERS Safety Report 5341393-0 (Version None)
Quarter: 2007Q2

REPORT INFORMATION
  Report Type: 
  Country: None (occurrence: None)
  Receive Date: 20070530
  Receipt Date: 20070516
  Transmission Date: 20071010
  Serious: Yes (Hospitalization, Other)
  Sender: FDA-Public Use
  Company Number: IMP_02909_2007

PATIENT
  Age: 60 Year
  Sex: Female

DRUGS (2)
  1. FENOFIBRATE [Suspect]
     Indication: HYPERTRIGLYCERIDAEMIA
     Dosage: (250 MG QD)
     Dates: start: 20031201, end: 20031214
  2. RALOXIFENE HYDROCHLORIDE [Suspect]
     Indication: OSTEOPOROSIS PROPHYLAXIS
     Dosage: (60 MG QD)
     Dates: start: 20000101, end: 20031214

REACTIONS (8)
  - CHOLELITHIASIS [None]
  - CHOLESTASIS [None]
  - CHROMATURIA [None]
  - HEPATIC NECROSIS [None]
  - LYMPHOPENIA [None]
  - PRURIGO [None]
  - RASH MORBILLIFORM [None]
  - WHITE BLOOD CELL COUNT INCREASED [None]
